FAERS Safety Report 12539926 (Version 2)
Quarter: 2016Q3

REPORT INFORMATION
  Report Type: Spontaneous
  Country: US (occurrence: US)
  Receive Date: 20160708
  Receipt Date: 20160804
  Transmission Date: 20161109
  Serious: No
  Sender: FDA-Public Use
  Company Number: US-GLAXOSMITHKLINE-US2016091993

PATIENT
  Age: 59 Year
  Sex: Male

DRUGS (3)
  1. VENTOLIN HFA [Suspect]
     Active Substance: ALBUTEROL SULFATE
     Indication: LUNG NEOPLASM MALIGNANT
     Dosage: 2 PUFF(S), 4 TO 6 TIMES DAILY
     Route: 055
     Dates: start: 2012
  2. SPIRIVA [Concomitant]
     Active Substance: TIOTROPIUM BROMIDE MONOHYDRATE
  3. VENTOLIN HFA [Suspect]
     Active Substance: ALBUTEROL SULFATE
     Indication: DYSPNOEA

REACTIONS (9)
  - Peripheral coldness [Not Recovered/Not Resolved]
  - Restlessness [Recovered/Resolved]
  - Off label use [Unknown]
  - Blood pressure increased [Unknown]
  - Computerised tomogram [Recovered/Resolved]
  - Cardiac stress test [Recovered/Resolved]
  - Product use issue [Unknown]
  - Muscle tightness [Not Recovered/Not Resolved]
  - Intentional product misuse [Unknown]

NARRATIVE: CASE EVENT DATE: 201601
